FAERS Safety Report 7624184-7 (Version None)
Quarter: 2011Q3

REPORT INFORMATION
  Report Type: 
  Country: None (occurrence: None)
  Receive Date: 20110720
  Receipt Date: 20110720
  Transmission Date: 20111222
  Serious: Yes (Other)
  Sender: FDA-Public Use
  Company Number: None

PATIENT
  Age: 26 Year
  Sex: Female
  Weight: 54.431 kg

DRUGS (2)
  1. ABREVA [Suspect]
     Indication: ORAL HERPES
     Dates: start: 20110716, end: 20110717
  2. SPRINTEC [Interacting]

REACTIONS (2)
  - LIP SWELLING [None]
  - PARAESTHESIA ORAL [None]
